FAERS Safety Report 5370022-5 (Version None)
Quarter: 2007Q2

REPORT INFORMATION
  Report Type: 
  Country: None (occurrence: None)
  Receive Date: 20070626
  Receipt Date: 20070613
  Transmission Date: 20071010
  Serious: Yes (Other)
  Sender: FDA-Public Use
  Company Number: PHEH2007US08787

PATIENT
  Age: 57 Year
  Sex: Male

DRUGS (1)
  1. GLEEVEC [Suspect]
     Indication: CHRONIC MYELOID LEUKAEMIA
     Dosage: 400 MG, QD
     Route: 048
     Dates: start: 20060101

REACTIONS (8)
  - BACK PAIN [None]
  - BONE MARROW FAILURE [None]
  - BONE MARROW OEDEMA [None]
  - DIFFERENTIAL WHITE BLOOD CELL COUNT ABNORMAL [None]
  - MEGAKARYOCYTES DECREASED [None]
  - NEOPLASM PROGRESSION [None]
  - RENAL OSTEODYSTROPHY [None]
  - TRANSFERRIN SATURATION DECREASED [None]
